FAERS Safety Report 17415373 (Version 1)
Quarter: 2020Q1

REPORT INFORMATION
  Report Type: Spontaneous
  Country: US (occurrence: US)
  Receive Date: 20200213
  Receipt Date: 20200213
  Transmission Date: 20200409
  Serious: No
  Sender: FDA-Public Use
  Company Number: US-ELI_LILLY_AND_COMPANY-US202002003304

PATIENT
  Age: 53 Year
  Sex: Female

DRUGS (2)
  1. EMGALITY [Suspect]
     Active Substance: GALCANEZUMAB-GNLM
     Indication: MIGRAINE
     Dosage: 120 MG, UNKNOWN
     Route: 058
  2. SUMATRIPTAN. [Concomitant]
     Active Substance: SUMATRIPTAN
     Indication: MIGRAINE
     Dosage: UNK, PRN

REACTIONS (12)
  - Skin wrinkling [Unknown]
  - Abdominal discomfort [Unknown]
  - Muscle twitching [Unknown]
  - Anxiety [Unknown]
  - Fatigue [Unknown]
  - Insomnia [Unknown]
  - Abdominal distension [Unknown]
  - Weight increased [Unknown]
  - Constipation [Unknown]
  - Product dose omission [Unknown]
  - Diarrhoea [Unknown]
  - Personality change [Unknown]

NARRATIVE: CASE EVENT DATE: 2019
